FAERS Safety Report 19986378 (Version 1)
Quarter: 2021Q4

REPORT INFORMATION
  Report Type: Report from Study
  Country: US (occurrence: US)
  Receive Date: 20211022
  Receipt Date: 20211022
  Transmission Date: 20220303
  Serious: Yes (Hospitalization)
  Sender: FDA-Public Use
  Company Number: US-GILEAD-2021-0553539

PATIENT
  Age: 8 Year
  Sex: Male

DRUGS (15)
  1. AZTREONAM LYSINE [Suspect]
     Active Substance: AZTREONAM LYSINE
     Indication: Chronic respiratory disease
     Dosage: 75 MG, TID, FOR ONE MONTH ON AND ONE MONTH OFF
     Route: 055
     Dates: start: 20210716
  2. ZYRTEC [Concomitant]
     Active Substance: CETIRIZINE HYDROCHLORIDE
     Dosage: UNK
  3. MOTRIN [Concomitant]
     Active Substance: IBUPROFEN
     Dosage: UNK
  4. ZOFRAN [Concomitant]
     Active Substance: ONDANSETRON HYDROCHLORIDE
     Dosage: UNK
  5. CIPRODEX [CIPROFLOXACIN LACTATE] [Concomitant]
     Dosage: UNK
  6. TOBRAMYCIN [Concomitant]
     Active Substance: TOBRAMYCIN
     Dosage: UNK
  7. NEXIUM I.V. [Concomitant]
     Active Substance: ESOMEPRAZOLE SODIUM
     Dosage: UNK
  8. PEPCID [Concomitant]
     Active Substance: FAMOTIDINE
     Dosage: UNK
  9. ALBUTEROL SULFATE [Concomitant]
     Active Substance: ALBUTEROL SULFATE
     Dosage: UNK
  10. TYLENOL [Concomitant]
     Active Substance: ACETAMINOPHEN
     Dosage: UNK
  11. ATROVENT [Concomitant]
     Active Substance: IPRATROPIUM BROMIDE
     Dosage: UNK
  12. BENADRYL ALLERGY [Concomitant]
     Active Substance: DIPHENHYDRAMINE HYDROCHLORIDE
     Dosage: UNK
  13. CYPROHEPTADINE [Concomitant]
     Active Substance: CYPROHEPTADINE
     Dosage: UNK
  14. KEPPRA [Concomitant]
     Active Substance: LEVETIRACETAM
     Dosage: UNK
  15. NOURISH [Concomitant]
     Dosage: UNK

REACTIONS (2)
  - Gastrointestinal stoma complication [Unknown]
  - Off label use [Not Recovered/Not Resolved]

NARRATIVE: CASE EVENT DATE: 20210925
